FAERS Safety Report 10391480 (Version 1)
Quarter: 2014Q3

REPORT INFORMATION
  Report Type: Spontaneous
  Country: CA (occurrence: CA)
  Receive Date: 20140818
  Receipt Date: 20140818
  Transmission Date: 20150326
  Serious: Yes (Hospitalization)
  Sender: FDA-Public Use
  Company Number: CA-TEVA-502067USA

PATIENT
  Sex: Male

DRUGS (8)
  1. TAMSULOSIN [Concomitant]
     Active Substance: TAMSULOSIN
     Indication: NOCTURIA
     Dosage: 0.4MG AT BEDTIME
     Route: 065
  2. LORAZEPAM. [Suspect]
     Active Substance: LORAZEPAM
     Indication: INSOMNIA
     Dosage: 1MG AT BEDTIME AS NEEDED
     Route: 065
  3. ESCITALOPRAM [Suspect]
     Active Substance: ESCITALOPRAM OXALATE
  4. PREDNISONE. [Concomitant]
     Active Substance: PREDNISONE
     Indication: PEMPHIGOID
     Route: 065
  5. TELMISARTAN. [Suspect]
     Active Substance: TELMISARTAN
     Dosage: 80MG/DAY
     Route: 065
  6. PANTOPRAZOLE [Suspect]
     Active Substance: PANTOPRAZOLE SODIUM
     Indication: GASTROINTESTINAL HAEMORRHAGE
     Route: 065
  7. METOPROLOL [Suspect]
     Active Substance: METOPROLOL
     Dosage: 50MG/DAY
     Route: 065
  8. LOPERAMIDE [Concomitant]
     Active Substance: LOPERAMIDE
     Indication: DIARRHOEA
     Dosage: 1MG AS NEEDED
     Route: 065

REACTIONS (9)
  - Orthostatic hypotension [Recovering/Resolving]
  - Faecal incontinence [Recovered/Resolved]
  - Sedation [Recovering/Resolving]
  - Laceration [Unknown]
  - Hyponatraemia [Recovering/Resolving]
  - Vitamin B12 deficiency [Recovering/Resolving]
  - Diarrhoea [Recovered/Resolved]
  - Vitamin D deficiency [Recovering/Resolving]
  - Fall [Recovering/Resolving]
